FAERS Safety Report 8375878-X (Version None)
Quarter: 2012Q2

REPORT INFORMATION
  Report Type: 
  Country: None (occurrence: None)
  Receive Date: 20120522
  Receipt Date: 20120514
  Transmission Date: 20120825
  Serious: Yes (Other)
  Sender: FDA-Public Use
  Company Number: JP-VERTEX PHARMACEUTICALS INC.-AE-2012-007246

PATIENT
  Age: 67 Year
  Sex: Female

DRUGS (3)
  1. REBETOL [Concomitant]
     Indication: HEPATITIS C
     Route: 048
     Dates: start: 20120419
  2. TELAVIC (TELAPREVIR) [Suspect]
     Indication: HEPATITIS C
     Route: 048
     Dates: start: 20120419, end: 20120514
  3. PEG-INTRON [Concomitant]
     Indication: HEPATITIS C
     Dates: start: 20120419

REACTIONS (2)
  - ERYTHEMA [None]
  - BLISTER [None]
